FAERS Safety Report 18166544 (Version 3)
Quarter: 2020Q3

REPORT INFORMATION
  Report Type: Other
  Country: DE (occurrence: DE)
  Receive Date: 20200819
  Receipt Date: 20200916
  Transmission Date: 20201103
  Serious: No
  Sender: FDA-Public Use
  Company Number: DE-ROCHE-2657449

PATIENT
  Sex: Female
  Weight: 87 kg

DRUGS (8)
  1. FENISTIL [Concomitant]
     Active Substance: DIMETHINDENE
     Dates: start: 20190408, end: 20190408
  2. PARACETAMOL [Concomitant]
     Active Substance: ACETAMINOPHEN
     Dates: start: 20190325, end: 20190325
  3. PARACETAMOL [Concomitant]
     Active Substance: ACETAMINOPHEN
     Dates: start: 20191011, end: 20200623
  4. FOSFOMYCIN [Concomitant]
     Active Substance: FOSFOMYCIN
     Indication: URINARY TRACT INFECTION
     Dates: start: 20191211, end: 20191211
  5. GLATIRAMER ACETATE. [Suspect]
     Active Substance: GLATIRAMER ACETATE
     Indication: PRODUCT USED FOR UNKNOWN INDICATION
     Route: 065
  6. FENISTIL [Concomitant]
     Active Substance: DIMETHINDENE
     Dates: start: 20190325, end: 20190325
  7. OCRELIZUMAB. [Suspect]
     Active Substance: OCRELIZUMAB
     Indication: MULTIPLE SCLEROSIS
     Route: 065
     Dates: start: 20190325, end: 20190408
  8. PARACETAMOL [Concomitant]
     Active Substance: ACETAMINOPHEN
     Dates: start: 20190408, end: 20190408

REACTIONS (1)
  - Pregnancy [Unknown]
